FAERS Safety Report 5015330-2 (Version None)
Quarter: 2006Q2

REPORT INFORMATION
  Report Type: 
  Country: None (occurrence: None)
  Receive Date: 20060601
  Receipt Date: 20060529
  Transmission Date: 20061013
  Serious: Yes (Hospitalization)
  Sender: FDA-Public Use
  Company Number: DE-AVENTIS-200611571DE

PATIENT
  Age: 65 Year
  Sex: Female
  Weight: 80 kg

DRUGS (4)
  1. DOCETAXEL [Suspect]
     Indication: BREAST CANCER
     Route: 042
     Dates: start: 20060525, end: 20060525
  2. GEMCITABINE [Suspect]
     Indication: BREAST CANCER
     Route: 042
     Dates: start: 20060525, end: 20060525
  3. FORTECORTIN [Concomitant]
     Route: 048
     Dates: start: 20060525, end: 20060525
  4. ZOFRAN [Concomitant]
     Route: 042
     Dates: start: 20060525, end: 20060525

REACTIONS (4)
  - GENERAL PHYSICAL HEALTH DETERIORATION [None]
  - NEURALGIA [None]
  - PAIN [None]
  - VERTIGO [None]
